FAERS Safety Report 12114776 (Version 3)
Quarter: 2016Q1

REPORT INFORMATION
  Report Type: Spontaneous
  Country: US (occurrence: US)
  Receive Date: 20160225
  Receipt Date: 20160316
  Transmission Date: 20160526
  Serious: Yes (Other)
  Sender: FDA-Public Use
  Company Number: US-BAYER-2016-035892

PATIENT
  Age: 43 Year
  Sex: Female

DRUGS (1)
  1. ULTRAVIST [Suspect]
     Active Substance: IOPROMIDE
     Indication: COMPUTERISED TOMOGRAM KIDNEY
     Dosage: 88 ML, UNK
     Dates: start: 20151109, end: 20151109

REACTIONS (4)
  - Anaphylactic reaction [None]
  - Cough [None]
  - Choking [None]
  - Erythema [None]

NARRATIVE: CASE EVENT DATE: 20151109
